FAERS Safety Report 4644479-9 (Version None)
Quarter: 2005Q2

REPORT INFORMATION
  Report Type: 
  Country: None (occurrence: None)
  Receive Date: 20050425
  Receipt Date: 20050425
  Transmission Date: 20051028
  Serious: Yes (Hospitalization)
  Sender: FDA-Public Use
  Company Number: None

PATIENT
  Age: 41 Year
  Sex: Male
  Weight: 67.1324 kg

DRUGS (2)
  1. CELEBREX [Suspect]
     Dosage: TWICE A DAY
  2. VIOXX [Suspect]

REACTIONS (1)
  - CHEST PAIN [None]
